FAERS Safety Report 6709465-3 (Version None)
Quarter: 2010Q2

REPORT INFORMATION
  Report Type: 
  Country: None (occurrence: None)
  Receive Date: 20100503
  Receipt Date: 20100503
  Transmission Date: 20101027
  Serious: Yes (Other)
  Sender: FDA-Public Use
  Company Number: None

PATIENT
  Age: 28 Year
  Sex: Female
  Weight: 63.5036 kg

DRUGS (2)
  1. EFFEXOR [Suspect]
     Indication: ANXIETY DISORDER
     Dosage: 150MG ONCE DAILY PO
     Route: 048
     Dates: start: 20090915, end: 20100405
  2. MONONESSA [Concomitant]

REACTIONS (3)
  - EXERCISE TOLERANCE DECREASED [None]
  - TACHYARRHYTHMIA [None]
  - WEIGHT INCREASED [None]
